FAERS Safety Report 26023343 (Version 1)
Quarter: 2025Q4

REPORT INFORMATION
  Report Type: Report from Study
  Country: US (occurrence: US)
  Receive Date: 20251110
  Receipt Date: 20251110
  Transmission Date: 20260118
  Serious: Yes (Death)
  Sender: ABBVIE
  Company Number: US-ABBVIE-6538403

PATIENT
  Sex: Male

DRUGS (3)
  1. VENCLEXTA [Suspect]
     Active Substance: VENETOCLAX
     Indication: Product used for unknown indication
     Dosage: TIME INTERVAL: TOTAL: STRENGTH-50MG ON DAY 1
     Route: 048
  2. VENCLEXTA [Suspect]
     Active Substance: VENETOCLAX
     Indication: Product used for unknown indication
     Dosage: TIME INTERVAL: TOTAL: STRENGTH-100MG ON DAY 2
     Route: 048
  3. VENCLEXTA [Suspect]
     Active Substance: VENETOCLAX
     Indication: Product used for unknown indication
     Dosage: TIME INTERVAL: TOTAL: STRENGTH-100MG FOR 21 DAYS OF 28 DAYS CYCLE
     Route: 048
     Dates: start: 202502, end: 202510

REACTIONS (1)
  - Death [Fatal]
